FAERS Safety Report 25011729 (Version 2)
Quarter: 2025Q1

REPORT INFORMATION
  Report Type: Report from Study
  Country: CA (occurrence: CA)
  Receive Date: 20250226
  Receipt Date: 20250306
  Transmission Date: 20250409
  Serious: Yes (Other)
  Sender: BIOCON
  Company Number: CA-MYLANLABS-2023M1113361

PATIENT

DRUGS (1)
  1. HULIO [Suspect]
     Active Substance: ADALIMUMAB-FKJP
     Indication: Crohn^s disease
     Route: 058
     Dates: start: 20230907

REACTIONS (6)
  - Uveitis [Unknown]
  - Urticaria [Unknown]
  - Pruritus [Unknown]
  - Dry eye [Unknown]
  - Lack of injection site rotation [Unknown]
  - Off label use [Unknown]
